FAERS Safety Report 7487382-1 (Version None)
Quarter: 2011Q2

REPORT INFORMATION
  Report Type: 
  Country: None (occurrence: None)
  Receive Date: 20110510
  Receipt Date: 20110426
  Transmission Date: 20111010
  Serious: Yes (Death, Hospitalization)
  Sender: FDA-Public Use
  Company Number: 2011050002

PATIENT
  Age: 92 Year
  Sex: Female

DRUGS (4)
  1. METHOTREXATE [Suspect]
     Indication: RHEUMATOID ARTHRITIS
     Dosage: 1.0714 MG (2.5 MG, 3 IN 1 WK),ORAL
     Route: 048
     Dates: start: 20101221, end: 20110111
  2. TORSEMIDE [Suspect]
     Indication: HYPERTENSION
     Dosage: 5 MG (5 MG, 1  IN 1 D), ORAL
     Route: 048
     Dates: start: 20101221, end: 20110111
  3. ACFOL COMPRIMIDOS (FOLIC ACID) [Concomitant]
  4. PREDNISOLONA (PREDNISOLONE) [Concomitant]

REACTIONS (2)
  - PANCYTOPENIA [None]
  - PNEUMONIA [None]
